FAERS Safety Report 6475055-3 (Version None)
Quarter: 2009Q4

REPORT INFORMATION
  Report Type: 
  Country: None (occurrence: None)
  Receive Date: 20091204
  Receipt Date: 20090504
  Transmission Date: 20100525
  Serious: Yes (Hospitalization)
  Sender: FDA-Public Use
  Company Number: US-ELI_LILLY_AND_COMPANY-US200903001247

PATIENT
  Sex: Male
  Weight: 117.91 kg

DRUGS (4)
  1. SOMATROPIN [Suspect]
     Indication: HYPOPITUITARISM
     Dosage: 0.2 MG, DAILY (1/D)
     Route: 058
     Dates: start: 20060401
  2. VITAMIN D [Concomitant]
  3. HUMIRA                                  /USA/ [Concomitant]
     Route: 058
  4. ANDROGEL [Concomitant]

REACTIONS (1)
  - RENAL CELL CARCINOMA [None]
